FAERS Safety Report 6316162-5 (Version None)
Quarter: 2009Q3

REPORT INFORMATION
  Report Type: 
  Country: None (occurrence: None)
  Receive Date: 20090820
  Receipt Date: 20090810
  Transmission Date: 20100115
  Serious: Yes (Other)
  Sender: FDA-Public Use
  Company Number: CA-JNJFOC-20090803523

PATIENT
  Sex: Female
  Weight: 95.26 kg

DRUGS (2)
  1. REMICADE [Suspect]
     Indication: COLITIS ULCERATIVE
     Route: 042
  2. PURINETHOL [Concomitant]

REACTIONS (2)
  - PARAESTHESIA [None]
  - SWELLING FACE [None]
